FAERS Safety Report 20876305 (Version 2)
Quarter: 2022Q3

REPORT INFORMATION
  Report Type: Spontaneous
  Country: US (occurrence: US)
  Receive Date: 20220526
  Receipt Date: 20220704
  Transmission Date: 20221027
  Serious: No
  Sender: FDA-Public Use
  Company Number: US-BRISTOL-MYERS SQUIBB COMPANY-2022-034977

PATIENT
  Age: 75 Year
  Sex: Female

DRUGS (3)
  1. REVLIMID [Suspect]
     Active Substance: LENALIDOMIDE
     Indication: Plasma cell myeloma
     Dosage: TAKE1CAPSULEBYMOUTH DAILY FOR 21DAYS ON AND 7 DAYS OFF.
     Route: 048
  2. REVLIMID [Suspect]
     Active Substance: LENALIDOMIDE
     Dosage: TAKING REVLIMID 1 CAPSULE BY MOUTH EVERY MORNING AT THE SAME TIME ON DAYS 1-14 OF A 21DAY CYCLE.
     Route: 048
  3. REVLIMID [Suspect]
     Active Substance: LENALIDOMIDE
     Dosage: TAKE ONE CAPSULE BY THE MOUTH AT THE SAME TIME EVERY MORNING ON DAYS 1 TO 14 OF A 21 DAY CYCLE
     Route: 048

REACTIONS (10)
  - Dry skin [Unknown]
  - Nausea [Unknown]
  - Diarrhoea [Unknown]
  - Hypotension [Unknown]
  - Presyncope [Unknown]
  - Palpitations [Unknown]
  - Abdominal distension [Unknown]
  - Abdominal pain upper [Unknown]
  - Off label use [Unknown]
  - Pain [Unknown]
